FAERS Safety Report 24761559 (Version 1)
Quarter: 2024Q4

REPORT INFORMATION
  Report Type: Spontaneous
  Country: US (occurrence: US)
  Receive Date: 20241220
  Receipt Date: 20241220
  Transmission Date: 20250114
  Serious: No
  Sender: EDENBRIDGE PHARMACEUTICALS
  Company Number: US-EDENBRIDGE PHARMACEUTICALS, LLC-US-2024EDE000042

PATIENT
  Sex: Male

DRUGS (1)
  1. IVERMECTIN [Suspect]
     Active Substance: IVERMECTIN
     Indication: Infection parasitic
     Dosage: 12 MG, SINGLE
     Route: 065
     Dates: start: 20240621

REACTIONS (2)
  - Treatment noncompliance [Unknown]
  - Inappropriate schedule of product administration [Unknown]

NARRATIVE: CASE EVENT DATE: 20240621
